FAERS Safety Report 6050009-X (Version None)
Quarter: 2009Q1

REPORT INFORMATION
  Report Type: 
  Country: None (occurrence: None)
  Receive Date: 20090121
  Receipt Date: 20090107
  Transmission Date: 20090719
  Serious: No
  Sender: FDA-Public Use
  Company Number: 235863J08USA

PATIENT
  Age: 32 Year
  Sex: Male
  Weight: 85 kg

DRUGS (4)
  1. REBIF [Suspect]
     Indication: MULTIPLE SCLEROSIS
     Dosage: NOT REPORTED
  2. SYNTHROID [Concomitant]
  3. BACLOFEN [Concomitant]
  4. FLUOXETINE (FLUOXETINE /00724401/ ) [Concomitant]

REACTIONS (1)
  - NO ADVERSE EVENT [None]
